FAERS Safety Report 19502774 (Version 1)
Quarter: 2021Q3

REPORT INFORMATION
  Report Type: Spontaneous
  Country: US (occurrence: US)
  Receive Date: 20210707
  Receipt Date: 20210707
  Transmission Date: 20211014
  Serious: Yes (Other)
  Sender: FDA-Public Use
  Company Number: US-ALLERGAN-2124178US

PATIENT
  Sex: Male

DRUGS (3)
  1. EXPRESS SHUNT [Suspect]
     Active Substance: DEVICE
     Indication: PRODUCT USED FOR UNKNOWN INDICATION
     Dosage: UNK
     Dates: start: 202104
  2. UNKNOWN EYE DROPS [Concomitant]
     Active Substance: UNSPECIFIED INGREDIENT
  3. DURYSTA [Suspect]
     Active Substance: BIMATOPROST
     Indication: GLAUCOMA
     Dosage: 10 ?G, SINGLE
     Route: 031
     Dates: start: 202101, end: 20210624

REACTIONS (2)
  - Corneal oedema [Unknown]
  - Corneal endothelial cell loss [Unknown]
